FAERS Safety Report 6447373-6 (Version None)
Quarter: 2009Q4

REPORT INFORMATION
  Report Type: 
  Country: None (occurrence: None)
  Receive Date: 20091119
  Receipt Date: 20091109
  Transmission Date: 20100525
  Serious: Yes (Hospitalization)
  Sender: FDA-Public Use
  Company Number: IT-ELI_LILLY_AND_COMPANY-IT200911002057

PATIENT
  Sex: Female
  Weight: 104 kg

DRUGS (6)
  1. SOMATROPIN [Suspect]
     Indication: HYPOPITUITARISM
     Dosage: 0.3 MG, DAILY (1/D)
     Dates: start: 20061201, end: 20080501
  2. EUTIROX [Concomitant]
     Indication: SECONDARY HYPOTHYROIDISM
     Dosage: UNK, UNK
     Dates: start: 19860101
  3. STATIN /00084401/ [Concomitant]
     Indication: LIPID METABOLISM DISORDER
     Dosage: UNK, UNK
     Dates: start: 20070101
  4. CORTONE [Concomitant]
     Indication: SECONDARY ADRENOCORTICAL INSUFFICIENCY
     Dosage: UNK, UNK
     Dates: start: 19860101
  5. VITAMIN D [Concomitant]
     Indication: VITAMIN D DEFICIENCY
     Dates: start: 20080101
  6. LANSOPRAZOLE [Concomitant]
     Indication: HIATUS HERNIA
     Dates: start: 20080101, end: 20090101

REACTIONS (1)
  - OVARIAN CYST [None]
